FAERS Safety Report 8286811-3 (Version None)
Quarter: 2012Q2

REPORT INFORMATION
  Report Type: 
  Country: None (occurrence: None)
  Receive Date: 20120416
  Receipt Date: 20120309
  Transmission Date: 20120825
  Serious: Yes (Hospitalization, Other)
  Sender: FDA-Public Use
  Company Number: LR-BAYER-2012-036194

PATIENT
  Age: 7 Year
  Sex: Male

DRUGS (2)
  1. PRAZIQUANTEL [Suspect]
     Indication: SCHISTOSOMIASIS
     Dosage: 40 MG/KG, ONCE
  2. COTRIM [Concomitant]
     Indication: GASTROENTERITIS SHIGELLA
     Dosage: 80MG/400MG, BID

REACTIONS (7)
  - COUGH [None]
  - URTICARIA [None]
  - HYPERSENSITIVITY [None]
  - DEHYDRATION [None]
  - PNEUMONITIS [None]
  - PYREXIA [None]
  - VOMITING [None]
